FAERS Safety Report 18243300 (Version 1)
Quarter: 2020Q3

REPORT INFORMATION
  Report Type: Spontaneous
  Country: US (occurrence: US)
  Receive Date: 20200908
  Receipt Date: 20200908
  Transmission Date: 20201103
  Serious: Yes (Hospitalization, Other)
  Sender: FDA-Public Use
  Company Number: US-JNJFOC-A-NJ2020-208352

PATIENT
  Age: 41 Year
  Sex: Female

DRUGS (6)
  1. REMDESIVIR. [Concomitant]
     Active Substance: REMDESIVIR
  2. REMODULIN [Concomitant]
     Active Substance: TREPROSTINIL
     Dosage: 20 NG/KG/MIN
     Route: 042
  3. OPSUMIT [Suspect]
     Active Substance: MACITENTAN
     Indication: PULMONARY ARTERIAL HYPERTENSION
     Dosage: 10 MG, QD
     Route: 048
  4. HYDROXYCHLOROQUINE [Concomitant]
     Active Substance: HYDROXYCHLOROQUINE
  5. TADALAFIL. [Concomitant]
     Active Substance: TADALAFIL
  6. TAMOXIFEN [Concomitant]
     Active Substance: TAMOXIFEN

REACTIONS (3)
  - Respiratory distress [Recovering/Resolving]
  - SARS-CoV-2 test positive [Unknown]
  - COVID-19 pneumonia [Recovering/Resolving]

NARRATIVE: CASE EVENT DATE: 20200812
